FAERS Safety Report 4356183-5 (Version None)
Quarter: 2004Q2

REPORT INFORMATION
  Report Type: 
  Country: None (occurrence: None)
  Receive Date: 20040507
  Receipt Date: 20040503
  Transmission Date: 20050107
  Serious: Yes (Other)
  Sender: FDA-Public Use
  Company Number: THQ2004A00410

PATIENT
  Age: 60 Year
  Sex: Male

DRUGS (2)
  1. LUCRIN DEPOT INJECTION (LEUPROLIDE ACETATE) (INJECTION) [Suspect]
     Indication: PROSTATE CANCER
     Dosage: 11.25 MG (11.25 MG, 1 IN 3M)
     Route: 058
  2. FLUTAMIDE [Concomitant]

REACTIONS (4)
  - FATIGUE [None]
  - FLATULENCE [None]
  - MUSCULAR WEAKNESS [None]
  - PANCYTOPENIA [None]
